FAERS Safety Report 24289551 (Version 1)
Quarter: 2024Q3

REPORT INFORMATION
  Report Type: Spontaneous
  Country: SA (occurrence: SA)
  Receive Date: 20240906
  Receipt Date: 20240906
  Transmission Date: 20241017
  Serious: Yes (Death)
  Sender: AMGEN
  Company Number: SA-AMGEN-SAUSP2024177416

PATIENT

DRUGS (2)
  1. BLINATUMOMAB [Suspect]
     Active Substance: BLINATUMOMAB
     Indication: B-cell type acute leukaemia
     Dosage: UNK
     Route: 065
  2. DASATINIB [Concomitant]
     Active Substance: DASATINIB
     Indication: B-cell type acute leukaemia

REACTIONS (1)
  - Death [Fatal]
